FAERS Safety Report 10757921 (Version 1)
Quarter: 2015Q1

REPORT INFORMATION
  Report Type: Spontaneous
  Country: US (occurrence: None)
  Receive Date: 20150202
  Receipt Date: 20150202
  Transmission Date: 20150721
  Serious: Yes (Disabling)
  Sender: FDA-Public Use
  Company Number: None

PATIENT
  Age: 79 Year
  Sex: Male
  Weight: 71.67 kg

DRUGS (11)
  1. SELSUN BLUE [Suspect]
     Active Substance: SELENIUM SULFIDE
     Indication: HAIR TEXTURE ABNORMAL
     Dosage: SOAP USE 2X WEEK 2X WEEK ON THE SKIN
     Route: 061
     Dates: start: 20141203, end: 20141216
  2. FLUTICASONE [Concomitant]
     Active Substance: FLUTICASONE\FLUTICASONE PROPIONATE
  3. LISINOPRIL. [Concomitant]
     Active Substance: LISINOPRIL
  4. SELSUN BLUE [Suspect]
     Active Substance: SELENIUM SULFIDE
     Indication: DRY SKIN
     Dosage: SOAP USE 2X WEEK 2X WEEK ON THE SKIN
     Route: 061
     Dates: start: 20141203, end: 20141216
  5. ASMONEX [Concomitant]
  6. ONE A DAY MULTIVITAMIN [Concomitant]
  7. LORATADINE. [Concomitant]
     Active Substance: LORATADINE
  8. ASPIRIN. [Concomitant]
     Active Substance: ASPIRIN
  9. ATORVASTATIN [Concomitant]
     Active Substance: ATORVASTATIN
  10. PROAIR HFA [Concomitant]
     Active Substance: ALBUTEROL SULFATE
  11. LORATADINE. [Concomitant]
     Active Substance: LORATADINE

REACTIONS (3)
  - Rash pruritic [None]
  - Drug intolerance [None]
  - Documented hypersensitivity to administered product [None]

NARRATIVE: CASE EVENT DATE: 201412
